FAERS Safety Report 23858450 (Version 5)
Quarter: 2024Q4

REPORT INFORMATION
  Report Type: Spontaneous
  Country: JP (occurrence: JP)
  Receive Date: 20240515
  Receipt Date: 20241101
  Transmission Date: 20250114
  Serious: Yes (Death, Hospitalization, Other)
  Sender: GENMAB
  Company Number: JP-GENMAB-2024-00722AA

PATIENT
  Age: 64 Year
  Sex: Female

DRUGS (3)
  1. EPKINLY [Suspect]
     Active Substance: EPCORITAMAB-BYSP
     Indication: Diffuse large B-cell lymphoma refractory
     Dosage: 0.16 MILLIGRAM, SINGLE, THE FIRST DOSE IN CYCLE 1
     Route: 058
  2. EPKINLY [Suspect]
     Active Substance: EPCORITAMAB-BYSP
     Dosage: 0.8 MILLIGRAM, SINGLE, THE SECOND DOSE IN CYCLE 1
     Route: 058
  3. EPKINLY [Suspect]
     Active Substance: EPCORITAMAB-BYSP
     Dosage: 48 MILLIGRAM, WEEKLY, THE THIRD DOSE IN CYCLE 1
     Route: 058

REACTIONS (4)
  - Diffuse large B-cell lymphoma refractory [Fatal]
  - Cytokine release syndrome [Recovered/Resolved]
  - Cytokine release syndrome [Recovering/Resolving]
  - Pneumonia [Recovered/Resolved]
